FAERS Safety Report 10351610 (Version 2)
Quarter: 2014Q3

REPORT INFORMATION
  Report Type: Spontaneous
  Country: US (occurrence: US)
  Receive Date: 20140730
  Receipt Date: 20140730
  Transmission Date: 20150326
  Serious: Yes (Hospitalization, Disabling, Other)
  Sender: FDA-Public Use
  Company Number: US-009507513-2010SP019254

PATIENT
  Sex: Female
  Weight: 67.59 kg

DRUGS (5)
  1. ASPIRIN. [Suspect]
     Active Substance: ASPIRIN
     Indication: DEEP VEIN THROMBOSIS
  2. NUVARING [Suspect]
     Active Substance: ETHINYL ESTRADIOL\ETONOGESTREL
     Dosage: UNK
     Route: 067
     Dates: start: 20090310, end: 20090730
  3. NUVARING [Suspect]
     Active Substance: ETHINYL ESTRADIOL\ETONOGESTREL
     Indication: CONTRACEPTION
     Dosage: UNK
     Route: 067
     Dates: start: 20090310, end: 20090730
  4. CLARITIN [Concomitant]
     Active Substance: LORATADINE
     Indication: PRODUCT USED FOR UNKNOWN INDICATION
     Dosage: 10 MG, QD
  5. VITAMINS (UNSPECIFIED) [Concomitant]
     Active Substance: VITAMINS

REACTIONS (53)
  - Ovarian cyst [Unknown]
  - Heart rate irregular [Unknown]
  - Haematemesis [Unknown]
  - Pulmonary embolism [Unknown]
  - Pain [Unknown]
  - Epstein-Barr virus infection [Unknown]
  - Urinary tract infection [Unknown]
  - Depression [Unknown]
  - Rash [Unknown]
  - Pain in extremity [Unknown]
  - Palpitations [Unknown]
  - Gait disturbance [Unknown]
  - Lobar pneumonia [Unknown]
  - Restless legs syndrome [Unknown]
  - Nocturia [Unknown]
  - Bronchitis [Unknown]
  - Joint swelling [Unknown]
  - Cardiac valve vegetation [Unknown]
  - Swelling face [Unknown]
  - Chronic fatigue syndrome [Unknown]
  - Anxiety [Unknown]
  - Weight decreased [Unknown]
  - Periorbital oedema [Unknown]
  - Nausea [Unknown]
  - Presyncope [Recovered/Resolved]
  - Pulmonary infarction [Unknown]
  - Embolism arterial [Unknown]
  - Varicose vein [Unknown]
  - Eye swelling [Unknown]
  - Influenza like illness [Unknown]
  - Dyspnoea [Unknown]
  - Dizziness [Unknown]
  - Asthenia [Unknown]
  - Vomiting [Recovered/Resolved]
  - Anaemia [Unknown]
  - Erythema [Unknown]
  - Cytomegalovirus infection [Unknown]
  - Erythema nodosum [Unknown]
  - Mitral valve incompetence [Unknown]
  - Tricuspid valve incompetence [Unknown]
  - Vision blurred [Unknown]
  - Respiratory failure [Unknown]
  - Deep vein thrombosis [Unknown]
  - Skin papilloma [Unknown]
  - Oedema peripheral [Unknown]
  - Streptococcus test positive [Unknown]
  - Rheumatic heart disease [Unknown]
  - Weight increased [Unknown]
  - Hypokalaemia [Unknown]
  - Thrombophlebitis [Unknown]
  - Sleep apnoea syndrome [Unknown]
  - Abdominal pain [Unknown]
  - Respiratory tract congestion [Unknown]

NARRATIVE: CASE EVENT DATE: 2009
